FAERS Safety Report 5787595-0 (Version None)
Quarter: 2008Q2

REPORT INFORMATION
  Report Type: 
  Country: None (occurrence: None)
  Receive Date: 20080625
  Receipt Date: 20080619
  Transmission Date: 20081010
  Serious: Yes (Hospitalization)
  Sender: FDA-Public Use
  Company Number: AU-MERCK-0805AUS00080

PATIENT
  Age: 50 Year
  Sex: Male

DRUGS (3)
  1. ISENTRESS [Suspect]
     Indication: HIV INFECTION
     Route: 065
  2. OXYCONTIN [Concomitant]
     Route: 065
  3. KALETRA [Concomitant]
     Route: 065

REACTIONS (7)
  - ATRIOVENTRICULAR BLOCK COMPLETE [None]
  - DIARRHOEA [None]
  - DRUG TOXICITY [None]
  - OVERDOSE [None]
  - STENT RELATED INFECTION [None]
  - TINEA CRURIS [None]
  - UROSEPSIS [None]
